FAERS Safety Report 7400307-X (Version None)
Quarter: 2011Q2

REPORT INFORMATION
  Report Type: 
  Country: None (occurrence: None)
  Receive Date: 20110407
  Receipt Date: 20110405
  Transmission Date: 20111010
  Serious: Yes (Disabling)
  Sender: FDA-Public Use
  Company Number: JP-SANOFI-AVENTIS-2011SA020515

PATIENT
  Sex: Female

DRUGS (2)
  1. AMARYL [Suspect]
     Indication: DIABETES MELLITUS
     Route: 048
     Dates: start: 20101101, end: 20110110
  2. BASEN [Concomitant]
     Route: 048
     Dates: start: 20101001, end: 20110104

REACTIONS (2)
  - CATARACT [None]
  - RETINOPATHY [None]
